FAERS Safety Report 26130970 (Version 1)
Quarter: 2025Q4

REPORT INFORMATION
  Report Type: Spontaneous
  Country: US (occurrence: US)
  Receive Date: 20251208
  Receipt Date: 20251208
  Transmission Date: 20260118
  Serious: No
  Sender: SANOFI AVENTIS
  Company Number: US-SANOFI-02741854

PATIENT
  Age: 3 Month
  Sex: Male
  Weight: 6.62 kg

DRUGS (4)
  1. BEYFORTUS [Suspect]
     Active Substance: NIRSEVIMAB-ALIP
     Indication: Immunisation
     Dosage: 50 MG, 1X
     Route: 065
     Dates: start: 20251202, end: 20251202
  2. VAXELIS [Concomitant]
     Active Substance: DIPHTHERIA AND TETANUS TOXOIDS AND ACELLULAR PERTUSSIS ADSORBED, INACTIVATED POLIOVIRUS AND HAEMOPHI
     Dosage: UNK
  3. ROTAVIRUS VACCINE NOS [Concomitant]
     Active Substance: ROTAVIRUS VACCINE
     Dosage: UNK
     Route: 065
  4. PREVNAR [Concomitant]
     Active Substance: PNEUMOCOCCAL 7-VALENT CONJUGATE VACCINE (DIPHTHERIA CRM197 PROTEIN)
     Dosage: UNK
     Route: 065

REACTIONS (1)
  - Incorrect dose administered [Unknown]

NARRATIVE: CASE EVENT DATE: 20251202
